FAERS Safety Report 7979847-0 (Version None)
Quarter: 2011Q4

REPORT INFORMATION
  Report Type: 
  Country: None (occurrence: None)
  Receive Date: 20111214
  Receipt Date: 20111205
  Transmission Date: 20120403
  Serious: Yes (Hospitalization)
  Sender: FDA-Public Use
  Company Number: IT-ROCHE-1019190

PATIENT
  Sex: Female

DRUGS (3)
  1. CEFTRIAXONE SODIUM [Suspect]
     Indication: BRONCHOPNEUMONIA
     Route: 030
     Dates: start: 20111122, end: 20111123
  2. ROCEPHIN [Suspect]
     Indication: BRONCHOPNEUMONIA
     Route: 030
     Dates: start: 20111122, end: 20111123
  3. AZITROMICINA [Concomitant]
     Indication: BRONCHOPNEUMONIA
     Route: 048
     Dates: start: 20111123, end: 20111123

REACTIONS (2)
  - ASTHMA [None]
  - URTICARIA [None]
